FAERS Safety Report 4638697-3 (Version None)
Quarter: 2005Q2

REPORT INFORMATION
  Report Type: 
  Country: None (occurrence: None)
  Receive Date: 20050419
  Receipt Date: 20050415
  Transmission Date: 20051028
  Serious: Yes (Death)
  Sender: FDA-Public Use
  Company Number: CN-BOEHRINGER INGELHEIM PHARMACEUTICALS, INC.-2005-BP-06165CS

PATIENT
  Age: 11 Month

DRUGS (2)
  1. ATROVENT [Suspect]
     Indication: WHEEZING
     Dosage: 50 UG
     Route: 055
     Dates: start: 20050410, end: 20050410
  2. BRICANYL [Suspect]
     Indication: WHEEZING
     Route: 055
     Dates: start: 20050410, end: 20050410

REACTIONS (1)
  - CYANOSIS [None]
